FAERS Safety Report 9181869 (Version 1)
Quarter: 2013Q1

REPORT INFORMATION
  Report Type: Spontaneous
  Country: US (occurrence: None)
  Receive Date: 20130321
  Receipt Date: 20130321
  Transmission Date: 20140127
  Serious: Yes (Hospitalization)
  Sender: FDA-Public Use
  Company Number: None

PATIENT
  Age: 64 Year
  Sex: Male
  Weight: 123.6 kg

DRUGS (2)
  1. AMILORIDE [Suspect]
     Indication: CARDIAC FAILURE CONGESTIVE
     Dosage: 2 TAB EVERY DAY PO
     Route: 048
     Dates: start: 20121120
  2. LISINOPRIL [Suspect]
     Indication: CARDIAC FAILURE CONGESTIVE
     Dosage: 1 TAB EVERY DAY PO
     Route: 048
     Dates: start: 19980702

REACTIONS (3)
  - Hyperkalaemia [None]
  - Pulmonary embolism [None]
  - Renal impairment [None]
